FAERS Safety Report 25883818 (Version 1)
Quarter: 2025Q4

REPORT INFORMATION
  Report Type: Spontaneous
  Country: US (occurrence: US)
  Receive Date: 20251006
  Receipt Date: 20251006
  Transmission Date: 20260118
  Serious: Yes (Hospitalization, Other)
  Sender: JOHNSON AND JOHNSON
  Company Number: US-JNJFOC-20250944043

PATIENT
  Age: 72 Year
  Sex: Female

DRUGS (1)
  1. CARVYKTI [Suspect]
     Active Substance: CILTACABTAGENE AUTOLEUCEL
     Indication: Plasma cell myeloma
     Dosage: 0.6 ? 10?
     Dates: start: 20250528, end: 20250528

REACTIONS (4)
  - Enterocolitis [Recovering/Resolving]
  - Cytomegalovirus viraemia [Unknown]
  - Enterobacter bacteraemia [Unknown]
  - Urinary tract infection enterococcal [Unknown]

NARRATIVE: CASE EVENT DATE: 20250730
